FAERS Safety Report 13715601 (Version 1)
Quarter: 2017Q3

REPORT INFORMATION
  Report Type: Spontaneous
  Country: DE (occurrence: DE)
  Receive Date: 20170705
  Receipt Date: 20170705
  Transmission Date: 20171127
  Serious: Yes (Congenital Anomaly)
  Sender: FDA-Public Use
  Company Number: DE-TORRENT-00006656

PATIENT
  Age: 1 Day
  Sex: Male
  Weight: 3 kg

DRUGS (3)
  1. LAMOTRIGIN [Suspect]
     Active Substance: LAMOTRIGINE
  2. FOLIO FORTE [Concomitant]
     Active Substance: FOLIC ACID\VITAMINS
  3. HOGGAR NIGHT [Concomitant]

REACTIONS (1)
  - Haemangioma congenital [Recovering/Resolving]

NARRATIVE: CASE EVENT DATE: 20150910
